FAERS Safety Report 13635678 (Version 1)
Quarter: 2017Q2

REPORT INFORMATION
  Report Type: Spontaneous
  Country: US (occurrence: US)
  Receive Date: 20170531
  Receipt Date: 20170531
  Transmission Date: 20170830
  Serious: No
  Sender: FDA-Public Use
  Company Number: US-ASTELLAS-1737633

PATIENT
  Sex: Female
  Weight: 37.68 kg

DRUGS (1)
  1. TARCEVA [Suspect]
     Active Substance: ERLOTINIB HYDROCHLORIDE
     Indication: LUNG NEOPLASM MALIGNANT
     Route: 065
     Dates: start: 201602, end: 20160324

REACTIONS (8)
  - Memory impairment [Recovered/Resolved]
  - Confusional state [Recovered/Resolved]
  - Weight decreased [Not Recovered/Not Resolved]
  - Dehydration [Recovered/Resolved]
  - Stomatitis [Unknown]
  - Rash [Unknown]
  - Dry skin [Unknown]
  - Asthenia [Recovered/Resolved]
